FAERS Safety Report 4381486-8 (Version None)
Quarter: 2004Q2

REPORT INFORMATION
  Report Type: 
  Country: None (occurrence: None)
  Receive Date: 20040615
  Receipt Date: 20040604
  Transmission Date: 20050107
  Serious: Yes (Hospitalization)
  Sender: FDA-Public Use
  Company Number: US-JNJFOC-20040602861

PATIENT
  Age: 78 Year
  Sex: Male

DRUGS (2)
  1. TYLENOL [Suspect]
     Indication: ARTHRITIS
     Dosage: 1300 MG, 1 IN 8 HOUR
     Dates: start: 20040502, end: 20040602
  2. ASPIRIN [Suspect]
     Dosage: 81 MG, 1 IN 1 DAY
     Dates: end: 20040602

REACTIONS (2)
  - GASTRIC ULCER HAEMORRHAGE [None]
  - LOSS OF CONSCIOUSNESS [None]
